FAERS Safety Report 9159810 (Version 3)
Quarter: 2013Q3

REPORT INFORMATION
  Report Type: Spontaneous
  Country: ZA (occurrence: ZA)
  Receive Date: 20130313
  Receipt Date: 20130724
  Transmission Date: 20140515
  Serious: Yes (Other)
  Sender: FDA-Public Use
  Company Number: ZA-BAYER-2013-028641

PATIENT
  Age: 75 Year
  Sex: Male

DRUGS (2)
  1. NEXAVAR 200 [Suspect]
     Indication: METASTATIC RENAL CELL CARCINOMA
     Dosage: 200 MG, BID
     Route: 048
     Dates: start: 20110530
  2. NEXAVAR 200 [Suspect]
     Indication: METASTATIC RENAL CELL CARCINOMA
     Dosage: 200 MG, BID
     Route: 048
     Dates: end: 20120426

REACTIONS (6)
  - Blindness [None]
  - Metastases to lymph nodes [None]
  - Transient ischaemic attack [None]
  - Pupillary reflex impaired [None]
  - Blood pressure increased [None]
  - Palmar-plantar erythrodysaesthesia syndrome [Recovered/Resolved]
